FAERS Safety Report 9498591 (Version 3)
Quarter: 2013Q4

REPORT INFORMATION
  Report Type: Spontaneous
  Country: US (occurrence: US)
  Receive Date: 20130904
  Receipt Date: 20131023
  Transmission Date: 20140711
  Serious: No
  Sender: FDA-Public Use
  Company Number: US-PFIZER INC-2013251315

PATIENT
  Age: 36 Year
  Sex: Male

DRUGS (2)
  1. BOSULIF [Suspect]
     Indication: LEUKAEMIA
     Dosage: 500 MG, 1X/DAY
     Route: 048
     Dates: start: 20130821
  2. BOSULIF [Suspect]
     Indication: BLAST CRISIS IN MYELOGENOUS LEUKAEMIA

REACTIONS (3)
  - Abdominal discomfort [Unknown]
  - Abdominal pain [Recovered/Resolved]
  - Proctalgia [Unknown]
